FAERS Safety Report 7475294-9 (Version None)
Quarter: 2011Q2

REPORT INFORMATION
  Report Type: 
  Country: None (occurrence: None)
  Receive Date: 20110505
  Receipt Date: 20110419
  Transmission Date: 20111010
  Serious: Yes (Hospitalization)
  Sender: FDA-Public Use
  Company Number: 1000020580

PATIENT
  Age: 69 Year
  Sex: Male

DRUGS (2)
  1. PRAVASTATIN [Concomitant]
  2. ESCITALOPRAM [Suspect]
     Indication: DEPRESSION
     Dosage: 15 MG (15 MG,1 IN 1 D),ORAL
     Route: 048
     Dates: start: 20050101, end: 20060101

REACTIONS (1)
  - GYNAECOMASTIA [None]
